FAERS Safety Report 21594855 (Version 2)
Quarter: 2023Q2

REPORT INFORMATION
  Report Type: Report from Study
  Country: DE (occurrence: DE)
  Receive Date: 20221115
  Receipt Date: 20230522
  Transmission Date: 20230721
  Serious: Yes (Other)
  Sender: FDA-Public Use
  Company Number: DE-SHIRE-DE201821878

PATIENT
  Age: 61 Year
  Sex: Male

DRUGS (23)
  1. PARATHYROID HORMONE [Suspect]
     Active Substance: PARATHYROID HORMONE
     Indication: Hypoparathyroidism
     Dosage: 25 MICROGRAM, BID
     Route: 058
     Dates: start: 20171211
  2. PARATHYROID HORMONE [Suspect]
     Active Substance: PARATHYROID HORMONE
     Indication: Hypoparathyroidism
     Dosage: 25 MICROGRAM, BID
     Route: 058
     Dates: start: 20171211
  3. PARATHYROID HORMONE [Suspect]
     Active Substance: PARATHYROID HORMONE
     Indication: Hypoparathyroidism
     Dosage: 25 MICROGRAM, BID
     Route: 058
     Dates: start: 20171211
  4. PARATHYROID HORMONE [Suspect]
     Active Substance: PARATHYROID HORMONE
     Dosage: 50 MICROGRAM, BID
     Route: 058
  5. PARATHYROID HORMONE [Suspect]
     Active Substance: PARATHYROID HORMONE
     Dosage: 50 MICROGRAM, BID
     Route: 058
  6. PARATHYROID HORMONE [Suspect]
     Active Substance: PARATHYROID HORMONE
     Dosage: 50 MICROGRAM, BID
     Route: 058
  7. PARATHYROID HORMONE [Suspect]
     Active Substance: PARATHYROID HORMONE
     Dosage: 75 MICROGRAM, BID
     Route: 058
     Dates: end: 20210211
  8. PARATHYROID HORMONE [Suspect]
     Active Substance: PARATHYROID HORMONE
     Dosage: 75 MICROGRAM, BID
     Route: 058
     Dates: end: 20210211
  9. PARATHYROID HORMONE [Suspect]
     Active Substance: PARATHYROID HORMONE
     Dosage: 75 MICROGRAM, BID
     Route: 058
     Dates: end: 20210211
  10. PARATHYROID HORMONE [Suspect]
     Active Substance: PARATHYROID HORMONE
     Dosage: 75 MICROGRAM, QD
     Route: 058
  11. PARATHYROID HORMONE [Suspect]
     Active Substance: PARATHYROID HORMONE
     Dosage: 75 MICROGRAM, QD
     Route: 058
  12. PARATHYROID HORMONE [Suspect]
     Active Substance: PARATHYROID HORMONE
     Dosage: 75 MICROGRAM, QD
     Route: 058
  13. PARATHYROID HORMONE [Suspect]
     Active Substance: PARATHYROID HORMONE
     Dosage: 100 MICROGRAM
     Route: 065
  14. PARATHYROID HORMONE [Suspect]
     Active Substance: PARATHYROID HORMONE
     Dosage: 100 MICROGRAM
     Route: 065
  15. PARATHYROID HORMONE [Suspect]
     Active Substance: PARATHYROID HORMONE
     Dosage: 100 MICROGRAM
     Route: 065
  16. PARATHYROID HORMONE [Suspect]
     Active Substance: PARATHYROID HORMONE
     Dosage: 66 MICROGRAM, QD
     Route: 058
  17. PARATHYROID HORMONE [Suspect]
     Active Substance: PARATHYROID HORMONE
     Dosage: 66 MICROGRAM, QD
     Route: 058
  18. PARATHYROID HORMONE [Suspect]
     Active Substance: PARATHYROID HORMONE
     Dosage: 66 MICROGRAM, QD
     Route: 058
  19. EUTHYROX [Concomitant]
     Active Substance: LEVOTHYROXINE SODIUM
     Indication: Thyroidectomy
     Dosage: 150 MICROGRAM, QD
     Route: 048
  20. CALCIUM [Concomitant]
     Active Substance: CALCIUM
     Indication: Hypoparathyroidism
     Dosage: 300 MILLIGRAM, BID
     Route: 048
  21. CALCIUM [Concomitant]
     Active Substance: CALCIUM
     Dosage: 300 MILLIGRAM, QD
     Route: 048
  22. MAGNESIUM [Concomitant]
     Active Substance: MAGNESIUM
     Indication: Product used for unknown indication
     Dosage: UNK UNK, TID
     Route: 048
  23. TERIPARATIDE [Concomitant]
     Active Substance: TERIPARATIDE
     Indication: Hypoparathyroidism
     Dosage: UNK
     Route: 058
     Dates: start: 20221104

REACTIONS (11)
  - Blood calcium decreased [Recovered/Resolved]
  - Muscle rupture [Recovered/Resolved]
  - Arthralgia [Recovered/Resolved]
  - Joint stiffness [Recovered/Resolved]
  - Arthropathy [Not Recovered/Not Resolved]
  - Muscle spasms [Recovered/Resolved]
  - Hypocalcaemia [Recovered/Resolved]
  - Paraesthesia [Recovered/Resolved]
  - Hypoaesthesia [Recovered/Resolved]
  - Treatment noncompliance [Recovered/Resolved]
  - Drug ineffective [Recovered/Resolved]

NARRATIVE: CASE EVENT DATE: 20180514
